FAERS Safety Report 7166596-4 (Version None)
Quarter: 2010Q4

REPORT INFORMATION
  Report Type: 
  Country: None (occurrence: None)
  Receive Date: 20101216
  Receipt Date: 20101207
  Transmission Date: 20110411
  Serious: Yes (Hospitalization)
  Sender: FDA-Public Use
  Company Number: PHHY2010US84236

PATIENT
  Sex: Male

DRUGS (5)
  1. TOBI [Suspect]
     Indication: CYSTIC FIBROSIS
     Dosage: 300 MG BID Q 28 DAYS
     Dates: start: 20100901
  2. PULMOZYME [Concomitant]
  3. AZITHROMYCIN [Concomitant]
  4. CREON [Concomitant]
  5. VITAMIN A W/VITAMIN D/VITAMIN E/VITAMIN K/ [Concomitant]

REACTIONS (5)
  - BRONCHIAL SECRETION RETENTION [None]
  - CHEST PAIN [None]
  - DYSPNOEA [None]
  - PSEUDOMONAS TEST POSITIVE [None]
  - STAPHYLOCOCCUS TEST POSITIVE [None]
